FAERS Safety Report 23343226 (Version 1)
Quarter: 2023Q4

REPORT INFORMATION
  Report Type: Spontaneous
  Country: US (occurrence: US)
  Receive Date: 20231227
  Receipt Date: 20231227
  Transmission Date: 20240110
  Serious: No
  Sender: FDA-Public Use
  Company Number: US-UPSHER-SMITH LABORATORIES, LLC-2023USL00653

PATIENT
  Age: 40 Year
  Sex: Female
  Weight: 74.83 kg

DRUGS (7)
  1. POTASSIUM CHLORIDE [Suspect]
     Active Substance: POTASSIUM CHLORIDE
     Indication: Blood potassium decreased
     Dosage: 10 MEQ, 2X/DAY WITH FOOD
     Route: 048
     Dates: start: 20230621, end: 2023
  2. POTASSIUM CHLORIDE [Suspect]
     Active Substance: POTASSIUM CHLORIDE
     Indication: Renin decreased
     Dosage: 10 MEQ, 1X/DAY
     Route: 048
     Dates: start: 2023
  3. POTASSIUM CHLORIDE [Suspect]
     Active Substance: POTASSIUM CHLORIDE
     Indication: Blood aldosterone decreased
  4. 5 UNSPECIFIED MEDICATIONS [Concomitant]
     Dosage: ^REGULARLY^
  5. SOME UNSPECIFIED MEDICATIONS [Concomitant]
     Dosage: UNK, AS NEEDED
  6. UNSPECIFIED INGREDIENT [Concomitant]
     Active Substance: UNSPECIFIED INGREDIENT
     Dosage: UNK
     Dates: end: 2023
  7. UNSPECIFIED INGREDIENT [Concomitant]
     Active Substance: UNSPECIFIED INGREDIENT
     Dosage: UNK, INCREASED
     Dates: start: 2023

REACTIONS (4)
  - Fatigue [Not Recovered/Not Resolved]
  - Arthralgia [Not Recovered/Not Resolved]
  - Nausea [Not Recovered/Not Resolved]
  - Reaction to excipient [Not Recovered/Not Resolved]

NARRATIVE: CASE EVENT DATE: 20230601
